FAERS Safety Report 10472962 (Version 1)
Quarter: 2014Q3

REPORT INFORMATION
  Report Type: Spontaneous
  Country: US (occurrence: US)
  Receive Date: 20140924
  Receipt Date: 20140924
  Transmission Date: 20150326
  Serious: No
  Sender: FDA-Public Use
  Company Number: US-PFIZER INC-2014261068

PATIENT
  Sex: Female

DRUGS (4)
  1. NEURONTIN [Suspect]
     Active Substance: GABAPENTIN
     Indication: DIABETIC NEUROPATHY
     Dosage: 300 MG, UNK
  2. NEURONTIN [Suspect]
     Active Substance: GABAPENTIN
     Dosage: 850 MG, 3X/DAY
  3. MORPHINE [Concomitant]
     Active Substance: MORPHINE
     Dosage: 16 MG, 3X/DAY
  4. INDOCIN [Concomitant]
     Active Substance: INDOMETHACIN\INDOMETHACIN SODIUM
     Dosage: 100 MG, 4X/DAY

REACTIONS (1)
  - Drug ineffective [Unknown]
